FAERS Safety Report 5704385-5 (Version None)
Quarter: 2008Q2

REPORT INFORMATION
  Report Type: 
  Country: None (occurrence: None)
  Receive Date: 20080414
  Receipt Date: 20080407
  Transmission Date: 20081010
  Serious: Yes (Other)
  Sender: FDA-Public Use
  Company Number: A0722440A

PATIENT
  Age: 4 Year
  Sex: Female

DRUGS (2)
  1. SERETIDE [Suspect]
     Indication: ASTHMA
     Route: 055
     Dates: start: 20061001
  2. SALBUTAMOL [Concomitant]

REACTIONS (3)
  - APHTHOUS STOMATITIS [None]
  - ASTHMA [None]
  - ATROPHY OF TONGUE PAPILLAE [None]
